FAERS Safety Report 24283506 (Version 3)
Quarter: 2024Q4

REPORT INFORMATION
  Report Type: Report from Study
  Country: US (occurrence: US)
  Receive Date: 20240904
  Receipt Date: 20241021
  Transmission Date: 20250115
  Serious: Yes (Other)
  Sender: SUNOVION
  Company Number: US-SMPA-2024SPA001096AA

PATIENT

DRUGS (8)
  1. ORGOVYX [Suspect]
     Active Substance: RELUGOLIX
     Indication: Prostate cancer
     Dosage: 360 MG, SINGLE
     Route: 048
  2. ORGOVYX [Suspect]
     Active Substance: RELUGOLIX
     Dosage: 120 MG, QD
     Route: 048
  3. VITAMIN C [Concomitant]
     Active Substance: ASCORBIC ACID
     Dosage: UNK
     Route: 065
  4. CHONDROITIN SULFATE A\GLUCOSAMINE [Concomitant]
     Active Substance: CHONDROITIN SULFATE A\GLUCOSAMINE
     Dosage: UNK
     Route: 065
  5. FLUTICASONE [Concomitant]
     Active Substance: FLUTICASONE
     Dosage: UNK
     Route: 065
  6. Neuriva brain health ultra [Concomitant]
     Dosage: UNK
     Route: 065
  7. NUBEQA [Concomitant]
     Active Substance: DAROLUTAMIDE
     Dosage: UNK
     Route: 065
  8. COLACE [Concomitant]
     Active Substance: DOCUSATE SODIUM
     Dosage: UNK
     Route: 065

REACTIONS (6)
  - Nephrolithiasis [Unknown]
  - Brain fog [Unknown]
  - Night sweats [Unknown]
  - Constipation [Unknown]
  - Hot flush [Unknown]
  - Asthenia [Unknown]
